FAERS Safety Report 10757746 (Version 1)
Quarter: 2015Q1

REPORT INFORMATION
  Report Type: Spontaneous
  Country: US (occurrence: None)
  Receive Date: 20150202
  Receipt Date: 20150202
  Transmission Date: 20150721
  Serious: Yes (Other)
  Sender: FDA-Public Use
  Company Number: None

PATIENT
  Age: 62 Year
  Sex: Female
  Weight: 48.08 kg

DRUGS (1)
  1. GABAPENTIN. [Suspect]
     Active Substance: GABAPENTIN
     Indication: NEURALGIA
     Dosage: ONE CAPSULE THREE TIMES DAILY TAKEN BY MOUTH
     Route: 048
     Dates: start: 20150201

REACTIONS (2)
  - Product quality issue [None]
  - Somnolence [None]

NARRATIVE: CASE EVENT DATE: 20150201
